FAERS Safety Report 6486554-2 (Version None)
Quarter: 2009Q4

REPORT INFORMATION
  Report Type: 
  Country: None (occurrence: None)
  Receive Date: 20091209
  Receipt Date: 20091209
  Transmission Date: 20100525
  Serious: No
  Sender: FDA-Public Use
  Company Number: None

PATIENT
  Age: 69 Year
  Sex: Female
  Weight: 83.4 kg

DRUGS (2)
  1. AZACITIDINE 100 MG VIAL BAXTER ONCO GMBH/CELGENE [Suspect]
     Indication: MYELODYSPLASTIC SYNDROME
     Dosage: 149 MG DAILY FOR 5 DAYS IV DRIP
     Route: 041
     Dates: start: 20091026, end: 20091030
  2. AZACITIDINE [Suspect]

REACTIONS (8)
  - ACUTE FEBRILE NEUTROPHILIC DERMATOSIS [None]
  - INFUSION SITE ERYTHEMA [None]
  - INFUSION SITE PAIN [None]
  - INFUSION SITE REACTION [None]
  - LEUKOCYTOCLASTIC VASCULITIS [None]
  - PYODERMA GANGRENOSUM [None]
  - SKIN LESION [None]
  - WOUND [None]
